FAERS Safety Report 6488728-3 (Version None)
Quarter: 2009Q4

REPORT INFORMATION
  Report Type: 
  Country: None (occurrence: None)
  Receive Date: 20091210
  Receipt Date: 20090910
  Transmission Date: 20100525
  Serious: No
  Sender: FDA-Public Use
  Company Number: US-AMGEN-KDL363878

PATIENT
  Sex: Female
  Weight: 131.7 kg

DRUGS (21)
  1. ENBREL [Suspect]
     Indication: ANKYLOSING SPONDYLITIS
  2. ENBREL [Suspect]
     Indication: CROHN'S DISEASE
  3. HUMIRA [Suspect]
     Indication: ANKYLOSING SPONDYLITIS
     Route: 058
     Dates: start: 20070430, end: 20090605
  4. HUMIRA [Suspect]
     Indication: CROHN'S DISEASE
  5. FENTANYL [Concomitant]
  6. LEVOTHYROXINE SODIUM [Concomitant]
  7. MODAFINIL [Concomitant]
  8. PREDNISONE [Concomitant]
  9. CALCITRIOL [Concomitant]
  10. CELECOXIB [Concomitant]
  11. PREGABALIN [Concomitant]
  12. ACETYLSALICYLIC ACID [Concomitant]
  13. CITALOPRAM HYDROBROMIDE [Concomitant]
  14. QUETIAPINE [Concomitant]
  15. DULOXETINE HYDROCHLORIDE [Concomitant]
  16. PRAMIPEXOLE DIHYDROCHLORIDE [Concomitant]
  17. TOPIRAMATE [Concomitant]
  18. RABEPRAZOLE SODIUM [Concomitant]
  19. ALENDRONATE SODIUM [Concomitant]
  20. FUROSEMIDE [Concomitant]
  21. ALBUTEROL [Concomitant]

REACTIONS (2)
  - DRUG INEFFECTIVE [None]
  - DYSPNOEA [None]
